FAERS Safety Report 4285147-5 (Version None)
Quarter: 2004Q1

REPORT INFORMATION
  Report Type: 
  Country: None (occurrence: None)
  Receive Date: 20040202
  Receipt Date: 20040123
  Transmission Date: 20041129
  Serious: Yes (Hospitalization)
  Sender: FDA-Public Use
  Company Number: MK200401-0292-1

PATIENT
  Age: 54 Year
  Sex: Male

DRUGS (2)
  1. TOFRANIL [Suspect]
     Dates: start: 20010710, end: 20010710
  2. BENOZIL [Concomitant]

REACTIONS (13)
  - ANXIETY [None]
  - BLOOD CHOLINESTERASE DECREASED [None]
  - BRADYCARDIA [None]
  - CONDITION AGGRAVATED [None]
  - DEPRESSED LEVEL OF CONSCIOUSNESS [None]
  - HAEMODIALYSIS [None]
  - INTENTIONAL SELF-INJURY [None]
  - IRRITABILITY [None]
  - JOINT INJURY [None]
  - MIOSIS [None]
  - PSYCHOMOTOR RETARDATION [None]
  - SALIVARY HYPERSECRETION [None]
  - SUICIDE ATTEMPT [None]
